FAERS Safety Report 21423490 (Version 4)
Quarter: 2022Q4

REPORT INFORMATION
  Report Type: Report from Study
  Country: ES (occurrence: ES)
  Receive Date: 20221007
  Receipt Date: 20221028
  Transmission Date: 20230113
  Serious: Yes (Hospitalization)
  Sender: FDA-Public Use
  Company Number: ES-ABBVIE-4143099

PATIENT
  Age: 48 Year
  Sex: Male

DRUGS (11)
  1. HUMIRA [Suspect]
     Active Substance: ADALIMUMAB
     Indication: Colitis ulcerative
     Dosage: TWO WEEKS
     Route: 058
     Dates: start: 20141029, end: 20160212
  2. HUMIRA [Suspect]
     Active Substance: ADALIMUMAB
     Route: 058
     Dates: start: 20160603, end: 20160803
  3. HUMIRA [Suspect]
     Active Substance: ADALIMUMAB
     Route: 058
     Dates: start: 20160818, end: 20180702
  4. HUMIRA [Suspect]
     Active Substance: ADALIMUMAB
     Route: 058
     Dates: start: 20190714, end: 202003
  5. HUMIRA [Suspect]
     Active Substance: ADALIMUMAB
     Route: 058
     Dates: start: 202004
  6. CODEINE PHOSPHATE [Concomitant]
     Active Substance: CODEINE PHOSPHATE
     Indication: Colitis ulcerative
     Route: 048
     Dates: start: 20160618
  7. CARBOXIMALTOSA IRON [Concomitant]
     Indication: Anaemia
     Route: 041
     Dates: start: 20130312
  8. OMEPRAZOLE [Concomitant]
     Active Substance: OMEPRAZOLE
     Indication: Colitis ulcerative
     Route: 041
     Dates: start: 20180829
  9. ACETAMINOPHEN [Concomitant]
     Active Substance: ACETAMINOPHEN
     Indication: Arthralgia
     Dosage: FREQUENCY- IF PAIN
     Route: 048
     Dates: start: 20180809
  10. TRAMADOL HYDROCHLORIDE / PARACETAMOL [Concomitant]
     Indication: Renal colic
     Dosage: 37,5/325 MG, ONLY IF YOU HAVE PAIN
     Route: 048
     Dates: start: 20201125
  11. TRAMADOL HYDROCHLORIDE / PARACETAMOL [Concomitant]
     Indication: Product used for unknown indication

REACTIONS (1)
  - Intestinal obstruction [Recovered/Resolved]

NARRATIVE: CASE EVENT DATE: 20220913
